FAERS Safety Report 9806158 (Version 1)
Quarter: 2014Q1

REPORT INFORMATION
  Report Type: Spontaneous
  Country: IN (occurrence: None)
  Receive Date: 20140107
  Receipt Date: 20140107
  Transmission Date: 20141002
  Serious: Yes (Congenital Anomaly)
  Sender: FDA-Public Use
  Company Number: 2013P1022326

PATIENT
  Age: 1 Day
  Sex: Female
  Weight: 3.8 kg

DRUGS (1)
  1. VALPROIC ACID [Suspect]
     Route: 064

REACTIONS (15)
  - Low set ears [None]
  - Dysmorphism [None]
  - Neck deformity [None]
  - Congenital oral malformation [None]
  - High arched palate [None]
  - Limb malformation [None]
  - Congenital cutis laxa [None]
  - Congenital acrochordon [None]
  - QRS axis abnormal [None]
  - Right ventricular hypertrophy [None]
  - Electrocardiogram T wave inversion [None]
  - Hepatomegaly [None]
  - Foetal anticonvulsant syndrome [None]
  - Cyanosis neonatal [None]
  - Maternal drugs affecting foetus [None]
